FAERS Safety Report 9971693 (Version 1)
Quarter: 2014Q1

REPORT INFORMATION
  Report Type: Report from Study
  Country: US (occurrence: US)
  Receive Date: 20140306
  Receipt Date: 20140306
  Transmission Date: 20141002
  Serious: No
  Sender: FDA-Public Use
  Company Number: US-ABBVIE-13P-163-1151110-00

PATIENT
  Sex: Female

DRUGS (11)
  1. HUMIRA [Suspect]
     Indication: RHEUMATOID ARTHRITIS
     Dates: start: 20130808
  2. VITAMIN B COMPLEX WITH B12 [Concomitant]
     Indication: ASTHENIA
  3. NEXIUM [Concomitant]
     Indication: GASTROOESOPHAGEAL REFLUX DISEASE
     Dosage: 40 MG DAILY
  4. IRON [Concomitant]
     Indication: PRODUCT USED FOR UNKNOWN INDICATION
     Dosage: 65 MG DAILY
  5. BIOTIN [Concomitant]
     Indication: ALOPECIA
     Dosage: 5000 MCG DAILY
  6. PLAQUENIL [Concomitant]
     Indication: PRODUCT USED FOR UNKNOWN INDICATION
     Dosage: AT BEDTIME
  7. NORVASC [Concomitant]
     Indication: HYPERTENSION
     Dosage: 5 MG DAILY
  8. VITAMIN D3 [Concomitant]
     Indication: PRODUCT USED FOR UNKNOWN INDICATION
  9. LOVAZA [Concomitant]
     Indication: HYPERTENSION
  10. LIDODERM [Concomitant]
     Indication: PAIN
  11. TRAMADOL [Concomitant]
     Indication: PAIN
     Dosage: 50 MG 1-2 TABS DAILY

REACTIONS (3)
  - Onychomadesis [Not Recovered/Not Resolved]
  - Wound haemorrhage [Not Recovered/Not Resolved]
  - Pain [Not Recovered/Not Resolved]
